FAERS Safety Report 8275816-4 (Version None)
Quarter: 2012Q2

REPORT INFORMATION
  Report Type: 
  Country: None (occurrence: None)
  Receive Date: 20120410
  Receipt Date: 20120410
  Transmission Date: 20120825
  Serious: No
  Sender: FDA-Public Use
  Company Number: None

PATIENT
  Age: 81 Year
  Sex: Female
  Weight: 77.1115 kg

DRUGS (1)
  1. FORTEO [Suspect]
     Indication: OSTEOPOROSIS
     Dosage: 20MCG DAILY SUBCUTANEOUSLY
     Route: 058
     Dates: start: 20120109, end: 20120314

REACTIONS (4)
  - ERYTHEMA [None]
  - DEVICE COLOUR ISSUE [None]
  - URTICARIA [None]
  - MASS [None]
